FAERS Safety Report 6602504-X (Version None)
Quarter: 2010Q1

REPORT INFORMATION
  Report Type: 
  Country: None (occurrence: None)
  Receive Date: 20100225
  Receipt Date: 20100215
  Transmission Date: 20100710
  Serious: Yes (Life-Threatening)
  Sender: FDA-Public Use
  Company Number: JP-ABBOTT-10P-087-0623181-00

PATIENT
  Age: 74 Year
  Sex: Male

DRUGS (15)
  1. LEUPLIN SR FOR INJECTION 11.25 MG [Suspect]
     Indication: PROSTATE CANCER STAGE IV
     Route: 058
     Dates: start: 20060720
  2. LEUPLIN SR FOR INJECTION 11.25 MG [Suspect]
     Dates: start: 20060623, end: 20060623
  3. FLUTAMIDE [Concomitant]
     Indication: PROSTATE CANCER STAGE IV
     Route: 048
     Dates: start: 20070424, end: 20070730
  4. ESTRAMUSTINE PHOSPHATE SODIUM [Concomitant]
     Indication: PROSTATE CANCER STAGE IV
     Route: 048
     Dates: start: 20070731, end: 20080226
  5. ALFAROL [Concomitant]
     Indication: PROSTATE CANCER STAGE IV
     Route: 048
     Dates: start: 20060623, end: 20070730
  6. RINDERON [Concomitant]
     Indication: PROSTATE CANCER STAGE IV
     Route: 048
     Dates: start: 20070731
  7. BICALUTAMIDE [Concomitant]
     Indication: PROSTATE CANCER STAGE IV
     Route: 048
     Dates: start: 20061024, end: 20070423
  8. CHLORMADINONE ACETATE TAB [Concomitant]
     Indication: PROSTATE CANCER STAGE IV
     Route: 048
     Dates: start: 20060623, end: 20061023
  9. DIETHYLSTILBESTROL [Concomitant]
     Indication: PROSTATE CANCER STAGE IV
     Route: 042
     Dates: start: 20060703, end: 20090729
  10. URSO 250 [Concomitant]
     Indication: LIVER DISORDER
     Route: 048
     Dates: start: 20060629, end: 20070730
  11. PROHEPARUM [Concomitant]
     Indication: LIVER DISORDER
     Route: 048
     Dates: start: 20060629, end: 20070730
  12. MUCOSTA [Concomitant]
     Indication: GASTRITIS PROPHYLAXIS
     Route: 048
     Dates: start: 20070731
  13. TRANSFUSION OF MAP-ADDED RED BLOOD CELL CONCENTRATE [Concomitant]
     Indication: DRUG USE FOR UNKNOWN INDICATION
     Dates: start: 20060623, end: 20060623
  14. TRANSFUSION OF MAP-ADDED RED BLOOD CELL CONCENTRATE [Concomitant]
     Dates: start: 20060624, end: 20060624
  15. TRANSFUSION OF MAP-ADDED RED BLOOD CELL CONCENTRATE [Concomitant]
     Dates: start: 20060629, end: 20060629

REACTIONS (2)
  - HYPERLIPIDAEMIA [None]
  - METASTASES TO BONE [None]
